FAERS Safety Report 13011278 (Version 5)
Quarter: 2018Q4

REPORT INFORMATION
  Report Type: Report from Study
  Country: US (occurrence: US)
  Receive Date: 20161209
  Receipt Date: 20181102
  Transmission Date: 20190204
  Serious: Yes (Hospitalization, Other)
  Sender: FDA-Public Use
  Company Number: US-ROCHE-1747377

PATIENT
  Age: 63 Year
  Sex: Female
  Weight: 68.5 kg

DRUGS (42)
  1. ADVAIR HFA [Concomitant]
     Active Substance: FLUTICASONE PROPIONATE\SALMETEROL XINAFOATE
     Route: 065
  2. SINGULAIR [Concomitant]
     Active Substance: MONTELUKAST SODIUM
     Indication: ASTHMA
     Route: 048
  3. BACLOFEN. [Concomitant]
     Active Substance: BACLOFEN
     Route: 048
  4. PREDNISONE. [Concomitant]
     Active Substance: PREDNISONE
     Route: 065
  5. TIOTROPIUM [Concomitant]
     Active Substance: TIOTROPIUM
     Dosage: 1 CAPSULE INTO INHALER
     Route: 065
  6. DOCUSATE [Concomitant]
     Active Substance: DOCUSATE
     Route: 048
  7. STERILE WATER [Concomitant]
     Active Substance: WATER
  8. XOLAIR [Suspect]
     Active Substance: OMALIZUMAB
     Route: 058
     Dates: start: 2016, end: 201609
  9. AMLODIPINE [Concomitant]
     Active Substance: AMLODIPINE BESYLATE
     Route: 048
  10. EPIPEN [Concomitant]
     Active Substance: EPINEPHRINE
     Indication: ANAPHYLACTIC REACTION
     Dosage: INTO THE MUSCLES AS NEEDED FOR ANAPHYLAXIS
     Route: 030
  11. OMEPRAZOLE. [Concomitant]
     Active Substance: OMEPRAZOLE
     Indication: GASTROOESOPHAGEAL REFLUX DISEASE
     Route: 048
  12. PREDNISONE. [Concomitant]
     Active Substance: PREDNISONE
     Route: 048
  13. TRAMADOL. [Concomitant]
     Active Substance: TRAMADOL
     Indication: PAIN
     Dosage: NEEDE FOR MODERATE PAIN
     Route: 048
  14. SPIRIVA [Concomitant]
     Active Substance: TIOTROPIUM BROMIDE MONOHYDRATE
  15. DUONEB [Concomitant]
     Active Substance: ALBUTEROL SULFATE\IPRATROPIUM BROMIDE
     Dosage: 1 PULL DAILY 1 NIGHTLY
     Route: 065
  16. XOLAIR [Suspect]
     Active Substance: OMALIZUMAB
     Indication: ASTHMA
     Route: 058
  17. SIMBICORT [Concomitant]
     Active Substance: BUDESONIDE\FORMOTEROL FUMARATE
     Indication: ASTHMA
     Dosage: AS REQUIED
     Route: 055
  18. ASPIRIN. [Concomitant]
     Active Substance: ASPIRIN
     Route: 048
  19. PATADAY [Concomitant]
     Active Substance: OLOPATADINE HYDROCHLORIDE
     Dosage: 1 DROP INTO BOTH EYSE
     Route: 065
  20. XOLAIR [Suspect]
     Active Substance: OMALIZUMAB
     Indication: ASTHMA
     Route: 058
     Dates: start: 2011, end: 2016
  21. XOLAIR [Suspect]
     Active Substance: OMALIZUMAB
     Dosage: 09/SEP/2016 AND 23/SEP/2016
     Route: 058
     Dates: start: 2011, end: 20160923
  22. ALBUTEROL HFA [Concomitant]
     Active Substance: ALBUTEROL SULFATE
     Indication: ASTHMA
     Dosage: AS REQUIRED.
     Route: 055
  23. ATROVENT [Concomitant]
     Active Substance: IPRATROPIUM BROMIDE
     Indication: ASTHMA
     Dosage: AS REQUIRED.
     Route: 055
  24. FLUTICASONE/SALMETEROL [Concomitant]
     Active Substance: FLUTICASONE PROPIONATE\SALMETEROL XINAFOATE
     Dosage: INHALE 1 PUFF TWO TIMES DAILY
     Route: 065
  25. LIRAGLUTIDE [Concomitant]
     Active Substance: LIRAGLUTIDE
     Dosage: INTO THE SKIN
     Route: 065
  26. INSULIN ASPART [Concomitant]
     Active Substance: INSULIN ASPART
     Dosage: 40 UNIT
     Route: 065
  27. LIDOCAINE. [Concomitant]
     Active Substance: LIDOCAINE
     Route: 061
  28. PROMETHAZINE W/ CODEINE [Concomitant]
     Route: 065
  29. PULMICORT TURBUHALER [Concomitant]
     Active Substance: BUDESONIDE
     Dosage: 1 PUFF 2 DAILY
     Route: 065
  30. GLUCAGON. [Concomitant]
     Active Substance: GLUCAGON
     Route: 065
  31. VENTOLINE [Concomitant]
     Active Substance: ALBUTEROL
     Dosage: 2 PUFF BY MOUTH EVERY 4 HR IF NEEDED.
     Route: 065
  32. ALBUTEROL. [Concomitant]
     Active Substance: ALBUTEROL
     Indication: ASTHMA
     Dosage: AS REQUIRED.
     Route: 055
  33. GABAPENTIN. [Concomitant]
     Active Substance: GABAPENTIN
     Route: 048
  34. METOPROLOL. [Concomitant]
     Active Substance: METOPROLOL
     Route: 048
  35. QVAR [Concomitant]
     Active Substance: BECLOMETHASONE DIPROPIONATE
  36. ADVAIR HFA [Concomitant]
     Active Substance: FLUTICASONE PROPIONATE\SALMETEROL XINAFOATE
     Indication: ASTHMA
     Dosage: 5/50MCG AS REQUIRED
     Route: 055
  37. BECLOMETHASONE [Concomitant]
     Active Substance: BECLOMETHASONE
     Dosage: INHALE 2 PUFF TWO TIMES DAILY
     Route: 065
  38. MIRTAZAPINE. [Concomitant]
     Active Substance: MIRTAZAPINE
     Dosage: START 0.5 TAB THEN 1 TAB DAILY
     Route: 048
  39. XOLAIR [Suspect]
     Active Substance: OMALIZUMAB
     Route: 058
     Dates: start: 20180522
  40. ATORVASTATIN [Concomitant]
     Active Substance: ATORVASTATIN
     Route: 048
  41. INSULIN DEGLUDEC [Concomitant]
     Active Substance: INSULIN DEGLUDEC
     Dosage: INJECT 30 UNITS UNDER THE SKIN
     Route: 065
  42. METFORMIN [Concomitant]
     Active Substance: METFORMIN HYDROCHLORIDE
     Route: 048

REACTIONS (11)
  - Asthma [Recovered/Resolved with Sequelae]
  - Cough [Unknown]
  - Thrombosis [Recovered/Resolved]
  - Nasopharyngitis [Recovered/Resolved]
  - Amnesia [Unknown]
  - Renal impairment [Unknown]
  - Pyrexia [Recovered/Resolved]
  - Myocardial infarction [Recovered/Resolved]
  - Influenza [Recovered/Resolved]
  - Malaise [Not Recovered/Not Resolved]
  - Pyrexia [Recovered/Resolved]

NARRATIVE: CASE EVENT DATE: 2016
